FAERS Safety Report 20120048 (Version 1)
Quarter: 2021Q4

REPORT INFORMATION
  Report Type: Spontaneous
  Country: US (occurrence: US)
  Receive Date: 20211126
  Receipt Date: 20211126
  Transmission Date: 20220303
  Serious: No
  Sender: FDA-Public Use
  Company Number: US-GLAXOSMITHKLINE-USCH2021084205

PATIENT
  Sex: Male

DRUGS (1)
  1. ADVIL SINUS CONGESTION AND PAIN [Suspect]
     Active Substance: IBUPROFEN\PHENYLEPHRINE HYDROCHLORIDE
     Indication: Sinus congestion
     Dosage: UNK

REACTIONS (3)
  - Sinus congestion [Unknown]
  - Condition aggravated [Unknown]
  - Drug ineffective [Unknown]
